FAERS Safety Report 5834967-1 (Version None)
Quarter: 2008Q3

REPORT INFORMATION
  Report Type: 
  Country: None (occurrence: None)
  Receive Date: 20080806
  Receipt Date: 20080424
  Transmission Date: 20090109
  Serious: No
  Sender: FDA-Public Use
  Company Number: US-BAYER-200821052NA

PATIENT
  Sex: Female

DRUGS (3)
  1. AVELOX [Suspect]
     Indication: SINUSITIS
     Route: 048
  2. ZOLOFT [Concomitant]
  3. BUSPAR [Concomitant]

REACTIONS (5)
  - AGITATION [None]
  - ANGER [None]
  - MIOSIS [None]
  - SUICIDAL IDEATION [None]
  - THINKING ABNORMAL [None]
